FAERS Safety Report 17992820 (Version 1)
Quarter: 2020Q3

REPORT INFORMATION
  Report Type: Spontaneous
  Country: PK (occurrence: PK)
  Receive Date: 20200707
  Receipt Date: 20200707
  Transmission Date: 20201103
  Serious: Yes (Death)
  Sender: FDA-Public Use
  Company Number: PK-NOVOPROD-737700

PATIENT
  Age: 65 Year
  Sex: Female

DRUGS (1)
  1. NOVOMIX 30 FLEXPEN [Suspect]
     Active Substance: INSULIN ASPART
     Indication: TYPE 2 DIABETES MELLITUS
     Dosage: 70 IU, QD (40+30)
     Route: 058
     Dates: start: 20200121, end: 20200617

REACTIONS (1)
  - Paralysis [Fatal]

NARRATIVE: CASE EVENT DATE: 20200603
